FAERS Safety Report 6144519-4 (Version None)
Quarter: 2009Q2

REPORT INFORMATION
  Report Type: 
  Country: None (occurrence: None)
  Receive Date: 20090406
  Receipt Date: 20090324
  Transmission Date: 20091009
  Serious: Yes (Other)
  Sender: FDA-Public Use
  Company Number: US-ROCHE-590543

PATIENT
  Sex: Female

DRUGS (5)
  1. PEG-INTERFERON A-2A (RO 25-8310) [Suspect]
     Indication: HEPATITIS C
     Dosage: FORM: PREFILLED SYRINGE, SUSPENDED FOR A  WEEK
     Route: 065
     Dates: start: 20080912, end: 20081024
  2. PEG-INTERFERON A-2A (RO 25-8310) [Suspect]
     Route: 065
     Dates: start: 20081031
  3. RIBAVIRIN [Suspect]
     Indication: HEPATITIS C
     Dosage: SUSPENDED FOR A WEEK
     Route: 065
     Dates: start: 20080912, end: 20081029
  4. RIBAVIRIN [Suspect]
     Route: 065
     Dates: start: 20081105
  5. NEXIUM [Concomitant]

REACTIONS (8)
  - ALOPECIA [None]
  - ANAEMIA [None]
  - HIATUS HERNIA [None]
  - ODYNOPHAGIA [None]
  - RED BLOOD CELL COUNT DECREASED [None]
  - VISION BLURRED [None]
  - VOMITING [None]
  - WHITE BLOOD CELL COUNT DECREASED [None]
